FAERS Safety Report 7074412-4 (Version None)
Quarter: 2010Q4

REPORT INFORMATION
  Report Type: 
  Country: None (occurrence: None)
  Receive Date: 20101029
  Receipt Date: 20101020
  Transmission Date: 20110411
  Serious: Yes (Other)
  Sender: FDA-Public Use
  Company Number: GXKR2010GB10381

PATIENT
  Age: 70 Year
  Sex: Female

DRUGS (6)
  1. LISINOPRIL (NGX) [Suspect]
     Indication: HYPERTENSION
     Dosage: 2.5 MG, UNK
     Route: 048
     Dates: end: 20100823
  2. RITUXIMAB [Suspect]
     Indication: RHEUMATOID ARTHRITIS
     Dosage: 1000 MG, UNK
     Route: 042
     Dates: start: 20100813
  3. AMITRIPTYLINE HCL [Concomitant]
     Indication: PAIN
     Dosage: 25 MG, UNK
     Route: 048
  4. MEBEVERINE [Concomitant]
     Indication: IRRITABLE BOWEL SYNDROME
     Dosage: 135 MG, TID
     Route: 048
  5. SULPHASALAZINE [Concomitant]
     Indication: RHEUMATOID ARTHRITIS
     Dosage: 1 G, BID
     Route: 048
     Dates: start: 20090101
  6. TRAMADOL [Concomitant]
     Indication: PAIN
     Dosage: 1 DF, QID
     Route: 048

REACTIONS (3)
  - DYSPNOEA [None]
  - MOUTH ULCERATION [None]
  - SWOLLEN TONGUE [None]
